FAERS Safety Report 8520485-9 (Version None)
Quarter: 2012Q3

REPORT INFORMATION
  Report Type: 
  Country: None (occurrence: None)
  Receive Date: 20120719
  Receipt Date: 20120710
  Transmission Date: 20120928
  Serious: Yes (Other)
  Sender: FDA-Public Use
  Company Number: IT-BRISTOL-MYERS SQUIBB COMPANY-16756967

PATIENT
  Age: 91 Year
  Sex: Female

DRUGS (2)
  1. IRBESARTAN [Suspect]
     Indication: HYPERTENSION
     Route: 048
     Dates: start: 20120620, end: 20120622
  2. VASEXTEN [Concomitant]

REACTIONS (2)
  - ERYTHEMA [None]
  - VASCULITIS [None]
